FAERS Safety Report 7320309-1 (Version None)
Quarter: 2011Q1

REPORT INFORMATION
  Report Type: 
  Country: None (occurrence: None)
  Receive Date: 20110228
  Receipt Date: 20110222
  Transmission Date: 20110831
  Serious: Yes (Life-Threatening, Hospitalization, Disabling)
  Sender: FDA-Public Use
  Company Number: B0701429A

PATIENT
  Age: 69 Year
  Sex: Male
  Weight: 100 kg

DRUGS (7)
  1. LISINOPRIL [Concomitant]
     Dosage: 2.5MG PER DAY
     Route: 048
  2. ORLISTAT [Suspect]
     Indication: OBESITY
     Dosage: 360MG PER DAY
     Route: 048
     Dates: start: 20091101, end: 20110101
  3. QVAR 40 [Concomitant]
     Dosage: 4IUAX PER DAY
     Route: 055
  4. SIMVASTATIN [Concomitant]
     Route: 048
  5. LANTUS [Concomitant]
     Route: 058
  6. ASPIRIN [Concomitant]
     Route: 048
  7. QUININE SULFATE [Concomitant]
     Dosage: 200MG PER DAY
     Route: 048

REACTIONS (4)
  - URINE OXALATE [None]
  - BLOOD CREATININE INCREASED [None]
  - NEPHROPATHY [None]
  - GLOMERULAR FILTRATION RATE DECREASED [None]
